FAERS Safety Report 4789818-3 (Version None)
Quarter: 2005Q4

REPORT INFORMATION
  Report Type: 
  Country: None (occurrence: None)
  Receive Date: 20051006
  Receipt Date: 20050930
  Transmission Date: 20060501
  Serious: Yes (Disabling, Other)
  Sender: FDA-Public Use
  Company Number: 418427

PATIENT
  Age: 39 Year
  Sex: Male

DRUGS (4)
  1. CARVEDILOL [Suspect]
     Indication: CARDIOMYOPATHY
     Route: 048
     Dates: start: 20030503, end: 20050825
  2. BISOPROLOL FUMARATE [Concomitant]
     Indication: DRUG USE FOR UNKNOWN INDICATION
     Dates: start: 20050825
  3. ENALAPRIL MALEATE [Concomitant]
     Indication: DRUG USE FOR UNKNOWN INDICATION
     Dates: start: 20011124
  4. TRAMADOL HYDROCHLORIDE [Concomitant]
     Indication: DRUG USE FOR UNKNOWN INDICATION
     Dates: start: 20050719

REACTIONS (5)
  - APATHY [None]
  - DEPRESSED MOOD [None]
  - DEPRESSION [None]
  - LOSS OF LIBIDO [None]
  - SUICIDAL IDEATION [None]
